FAERS Safety Report 18093582 (Version 1)
Quarter: 2020Q3

REPORT INFORMATION
  Report Type: Spontaneous
  Country: CN (occurrence: CN)
  Receive Date: 20200730
  Receipt Date: 20200730
  Transmission Date: 20201103
  Serious: Yes (Other)
  Sender: FDA-Public Use
  Company Number: CN-PFIZER INC-2020289519

PATIENT
  Age: 46 Year
  Sex: Female
  Weight: 62 kg

DRUGS (2)
  1. LIPITOR [Suspect]
     Active Substance: ATORVASTATIN CALCIUM
     Indication: CEREBRAL INFARCTION
     Dosage: 40 MG, 1X/DAY
     Route: 048
     Dates: start: 20200704, end: 20200715
  2. LIPITOR [Suspect]
     Active Substance: ATORVASTATIN CALCIUM
     Dosage: 20 MG, 1X/DAY

REACTIONS (2)
  - Hepatic function abnormal [Recovered/Resolved]
  - Myocardial necrosis marker increased [Recovered/Resolved]

NARRATIVE: CASE EVENT DATE: 20200715
